FAERS Safety Report 6189943-9 (Version None)
Quarter: 2009Q2

REPORT INFORMATION
  Report Type: 
  Country: None (occurrence: None)
  Receive Date: 20090514
  Receipt Date: 20090504
  Transmission Date: 20091009
  Serious: Yes (Hospitalization)
  Sender: FDA-Public Use
  Company Number: PHHO2009DE05623

PATIENT
  Sex: Male

DRUGS (2)
  1. MYCOPHENOLATE MOFETIL [Suspect]
     Indication: LUNG TRANSPLANT
     Dosage: 1500 MG
     Route: 048
     Dates: start: 20080201
  2. CYCLOSPORINE [Suspect]
     Indication: LUNG TRANSPLANT

REACTIONS (10)
  - BACK PAIN [None]
  - EPILEPSY [None]
  - FALL [None]
  - FRACTURE [None]
  - INFECTION [None]
  - LUMBAR VERTEBRAL FRACTURE [None]
  - PNEUMONIA [None]
  - PYREXIA [None]
  - SPEECH DISORDER [None]
  - THERAPEUTIC AGENT TOXICITY [None]
